FAERS Safety Report 9842698 (Version 8)
Quarter: 2020Q1

REPORT INFORMATION
  Report Type: Spontaneous
  Country: US (occurrence: US)
  Receive Date: 20140124
  Receipt Date: 20200317
  Transmission Date: 20200409
  Serious: Yes (Other)
  Sender: FDA-Public Use
  Company Number: US-PFIZER INC-2014021775

PATIENT
  Age: 79 Year
  Sex: Female

DRUGS (41)
  1. LYRICA [Suspect]
     Active Substance: PREGABALIN
     Indication: MYALGIA
     Dosage: UNK, 2X/DAY
     Route: 048
  2. LYRICA [Suspect]
     Active Substance: PREGABALIN
     Dosage: 75 MG, 2X/DAY
     Route: 048
     Dates: start: 20170913, end: 20180124
  3. LYRICA [Suspect]
     Active Substance: PREGABALIN
     Dosage: 75 MG, 2X/DAY
     Route: 048
     Dates: start: 20180124
  4. ASA [Concomitant]
     Active Substance: ASPIRIN
     Dosage: 81 MG, 1X/DAY
     Route: 048
  5. AMBIEN [Concomitant]
     Active Substance: ZOLPIDEM TARTRATE
     Indication: INSOMNIA
     Dosage: 1 DF, AS NEEDED (NIGHTLY)
     Route: 048
     Dates: start: 20160921
  6. FLONASE [Concomitant]
     Active Substance: FLUTICASONE PROPIONATE
     Dosage: 50 UG, 1X/DAY (50 MCG/ACTUATION, SPRAY TOWARDS SEPTUM OF NOSE)
     Route: 055
     Dates: start: 20171214
  7. VENTOLIN HFA [Concomitant]
     Active Substance: ALBUTEROL SULFATE
     Indication: WHEEZING
     Dosage: 180 UG, AS NEEDED [INHALE 2 PUFFS INTO THE LUNGS EVERY 6 (SIX) HOURS AS NEEDED]
     Route: 055
     Dates: start: 20170919
  8. PROAIR HFA [Concomitant]
     Active Substance: ALBUTEROL SULFATE
     Indication: WHEEZING
     Dosage: 180 UG, AS NEEDED [INHALE 2 PUFFS INTO THE LUNGS EVERY 6 (SIX) HOURS AS NEEDED]
     Route: 055
     Dates: start: 20170919
  9. FLONASE [Concomitant]
     Active Substance: FLUTICASONE PROPIONATE
     Dosage: 2 SPRAYS, IN EACH NOSTRIL, ONCE DAILY, SHAKE WELL AND INHALE
     Route: 055
     Dates: start: 20161019, end: 20170125
  10. ROBITUSSIN DM [Concomitant]
     Active Substance: DEXTROMETHORPHAN HYDROBROMIDE\GUAIFENESIN
     Dosage: 5 ML, 2X/DAY (EVERY 12 HOURS)
     Route: 048
     Dates: start: 20170919
  11. PREVACID [Concomitant]
     Active Substance: LANSOPRAZOLE
     Dosage: UNK
  12. SYNTHROID [Concomitant]
     Active Substance: LEVOTHYROXINE SODIUM
     Dosage: 1 TABLET ONCE DAILY ON AN EMPTY STOMACH
     Route: 048
     Dates: start: 20161019, end: 20170119
  13. SYNTHROID [Concomitant]
     Active Substance: LEVOTHYROXINE SODIUM
     Dosage: 150 UG, 1X/DAY [ONCE DAILY ON AN EMPTY STOMACH]
     Route: 048
     Dates: start: 20171108
  14. ATIVAN [Concomitant]
     Active Substance: LORAZEPAM
     Dosage: UNK
  15. MOBIC [Concomitant]
     Active Substance: MELOXICAM
     Dosage: 1 TABLET, ONCE DAILY
     Route: 048
     Dates: start: 20160921
  16. NORVASC [Concomitant]
     Active Substance: AMLODIPINE BESYLATE
     Dosage: 1 DF, ONCE DAILY
     Route: 048
     Dates: start: 20161019
  17. NORCO [Concomitant]
     Active Substance: ACETAMINOPHEN\HYDROCODONE BITARTRATE
     Dosage: UNK, AS NEEDED [(HYDROCODONE: 5-ACETAMINOPHEN: 325 MG) (TAKE 0.5 TABLETS BY MOUTH EVERY 6(SIX)HOUR]
     Route: 048
     Dates: start: 20180117
  18. PRILOSEC [Concomitant]
     Active Substance: OMEPRAZOLE MAGNESIUM
     Dosage: 20 MG, 2X/DAY(1/2 HOUR BEFORE BREAKFAST + BEFORE SUPPER)
     Route: 048
     Dates: start: 20170614
  19. DELTASONE [Concomitant]
     Active Substance: PREDNISONE
     Dosage: 2 TABLETS, ONCE DAILY (FOR 2 DAYS)
     Route: 048
     Dates: start: 20160120
  20. ESTRACE [Concomitant]
     Active Substance: ESTRADIOL
     Dosage: 1 G, 2X/WEEK (MONDAY AND THURSDAY)
     Route: 067
     Dates: start: 20161028
  21. TOFRANIL [Concomitant]
     Active Substance: IMIPRAMINE HYDROCHLORIDE
     Dosage: 1 TABLET EVERY MORNING THEN 3 TABLETS EVERY BEDTIME
     Route: 048
     Dates: start: 20170125
  22. TRIAVIL [Concomitant]
     Active Substance: AMITRIPTYLINE HYDROCHLORIDE\PERPHENAZINE
     Dosage: 1 TABLET, ONCE DAILY
     Route: 048
     Dates: start: 20170119
  23. DELTASONE [Concomitant]
     Active Substance: PREDNISONE
     Dosage: 1 TABLET, ONCE DAILY (FOR 2 DAYS)
     Route: 048
  24. DELTASONE [Concomitant]
     Active Substance: PREDNISONE
     Dosage: 1/2 TABLET ONCE A DAY (FOR 4 DAYS)
     Route: 048
  25. PROVENTIL HFA [Concomitant]
     Active Substance: ALBUTEROL SULFATE
     Indication: WHEEZING
     Dosage: 180 UG, AS NEEDED [INHALE 2 PUFFS INTO THE LUNGS EVERY 6 (SIX) HOURS AS NEEDED]
     Route: 055
     Dates: start: 20170919
  26. LYRICA [Suspect]
     Active Substance: PREGABALIN
     Indication: FIBROMYALGIA
     Dosage: 75 MG, 2X/DAY
     Route: 048
  27. NORCO [Concomitant]
     Active Substance: ACETAMINOPHEN\HYDROCODONE BITARTRATE
     Dosage: UNK, AS NEEDED [(HYDROCODONE: 5-ACETAMINOPHEN: 325 MG) (TAKE 0.5 TABLETS BY MOUTH EVERY 6(SIX)HOUR]
     Route: 048
     Dates: start: 20180117
  28. ALBUTEROL SULFATE. [Concomitant]
     Active Substance: ALBUTEROL SULFATE
     Indication: WHEEZING
     Dosage: 90 UG, AS NEEDED (SIG: INHALE 2 PUFFS INTO THE LUNGS EVERY 6 (SIX) HOURS)
     Route: 055
     Dates: start: 20170919, end: 20171003
  29. VICODIN [Concomitant]
     Active Substance: ACETAMINOPHEN\HYDROCODONE BITARTRATE
     Dosage: UNK
  30. BENTYL [Concomitant]
     Active Substance: DICYCLOMINE HYDROCHLORIDE
     Dosage: 1 DF, EVERY MORNING AS NEEDED
     Route: 048
     Dates: start: 20170119
  31. AMBIEN [Concomitant]
     Active Substance: ZOLPIDEM TARTRATE
     Dosage: 10 MG, AS NEEDED (AT BEDTIME)
     Route: 048
     Dates: start: 20171108
  32. XANAX [Concomitant]
     Active Substance: ALPRAZOLAM
     Dosage: 1 TABLET ONCE DAILY AS NEEDED, USED RARELY ONLY AND NOT TO BE TAKEN WITH HYDROCODONE- ACETAMINOPHEN
     Route: 048
     Dates: start: 20161019
  33. NORVASC [Concomitant]
     Active Substance: AMLODIPINE BESYLATE
     Dosage: 2.5 MG, 1X/DAY
     Route: 048
     Dates: start: 20180108
  34. TEMOVATE [Concomitant]
     Active Substance: CLOBETASOL PROPIONATE
     Dosage: 0.05 %, 2X/WEEK
     Route: 061
     Dates: start: 20160317
  35. LOTRISONE [Concomitant]
     Active Substance: BETAMETHASONE DIPROPIONATE\CLOTRIMAZOLE
     Dosage: UNK, APPLY THIN COAT TO AFFECTED AREA TWICE A DAY FOR 2 WEEKS
     Dates: start: 20141103
  36. LYRICA [Suspect]
     Active Substance: PREGABALIN
     Indication: MYOSITIS
     Dosage: UNK, 1X/DAY
     Route: 048
  37. VITAMIN B12 [Concomitant]
     Active Substance: CYANOCOBALAMIN
     Dosage: UNK
  38. BENTYL [Concomitant]
     Active Substance: DICYCLOMINE HYDROCHLORIDE
     Dosage: 10 MG, AS NEEDED (EVERY MORNING AS NEEDED)
     Route: 048
     Dates: start: 20170717
  39. NORVASC [Concomitant]
     Active Substance: AMLODIPINE BESYLATE
     Dosage: 2.5 MG, 1X/DAY(IF SBP GREATER THAN 150 TAKE EXTRA TAB DAILY)
     Route: 048
     Dates: start: 20170516
  40. NORCO [Concomitant]
     Active Substance: ACETAMINOPHEN\HYDROCODONE BITARTRATE
     Indication: PAIN
     Dosage: 0.5 TABLET EVERY SIX HOURS AS NEEDED
     Route: 048
     Dates: start: 20170125, end: 2017
  41. PRILOSEC [Concomitant]
     Active Substance: OMEPRAZOLE MAGNESIUM
     Dosage: 1 TABLET ONCE DAILY
     Route: 048
     Dates: start: 20161019

REACTIONS (6)
  - Blindness [Unknown]
  - Vascular compression [Unknown]
  - Gait disturbance [Unknown]
  - Dysphonia [Unknown]
  - Cataract [Unknown]
  - Somnolence [Unknown]
